FAERS Safety Report 18045480 (Version 4)
Quarter: 2020Q4

REPORT INFORMATION
  Report Type: Spontaneous
  Country: AU (occurrence: AU)
  Receive Date: 20200720
  Receipt Date: 20201211
  Transmission Date: 20210113
  Serious: Yes (Hospitalization, Other)
  Sender: FDA-Public Use
  Company Number: AU-MYLANLABS-2020M1065883

PATIENT
  Age: 30 Year
  Sex: Male

DRUGS (1)
  1. CLOZARIL [Suspect]
     Active Substance: CLOZAPINE
     Indication: SCHIZOPHRENIA
     Dosage: 200 MILLIGRAM
     Route: 048
     Dates: start: 20200703, end: 20201102

REACTIONS (5)
  - Liver injury [Unknown]
  - Acute hepatic failure [Not Recovered/Not Resolved]
  - Hepatic function abnormal [Unknown]
  - Echocardiogram abnormal [Unknown]
  - Hepatitis [Unknown]

NARRATIVE: CASE EVENT DATE: 20200707
